FAERS Safety Report 8502656-0 (Version None)
Quarter: 2012Q3

REPORT INFORMATION
  Report Type: 
  Country: None (occurrence: None)
  Receive Date: 20120702
  Receipt Date: 20120615
  Transmission Date: 20120928
  Serious: Yes (Hospitalization, Other)
  Sender: FDA-Public Use
  Company Number: 2012-000841

PATIENT
  Age: 77 Year
  Sex: Male

DRUGS (29)
  1. AMBIEN [Concomitant]
  2. CALCIUM CARBONATE [Concomitant]
  3. MIACALCIN [Concomitant]
  4. VIAGRA [Concomitant]
  5. DIGOXIN [Concomitant]
  6. KLOR-CON [Concomitant]
  7. BEXTRA /01400702/ (PARECOXIB SODIUM) [Concomitant]
  8. METHYLPREDNISOLONE [Concomitant]
  9. FOLIC ACID [Concomitant]
  10. GEMFIBROZIL [Concomitant]
  11. TRICOR /00090101/ (ADENOSINE) [Concomitant]
  12. LEVITRA [Concomitant]
  13. FLOMAX [Concomitant]
  14. ENABLEX /01760401/ (DARIFENACIN) [Concomitant]
  15. ACTONEL [Suspect]
     Indication: OSTEOPOROSIS
     Dosage: 35 MG ONCE WEEKLY, ORAL
     Route: 048
     Dates: start: 20020820
  16. FOSAMAX [Suspect]
     Indication: OSTEOPOROSIS
     Dosage: 70 MG, 1/WEEK, ORAL
     Route: 048
     Dates: start: 20060412
  17. VIOXX [Concomitant]
  18. SANCTURA [Concomitant]
  19. TEMAZEPAM [Concomitant]
  20. DETROL [Concomitant]
  21. MULTIVITAMIN /01229191/ (VITAMINS NOS) [Concomitant]
  22. ACTONEL [Suspect]
     Indication: OSTEOPOROSIS
     Dosage: 30 MG ONCE WEEKLY
     Dates: start: 20011114, end: 20020801
  23. FOSAMAX PLUS D [Suspect]
     Indication: OSTEOPOROSIS
     Dosage: 70 MG, 1/WEEK, ORAL
     Route: 048
     Dates: start: 20060911
  24. WARFARIN SODIUM [Concomitant]
  25. HYDROCHLOROTHIAZIDE [Concomitant]
  26. ALPRAZOLAM [Concomitant]
  27. TIMOLOL MALEATE [Concomitant]
  28. LUMIGAN [Concomitant]
  29. VESICARE [Concomitant]

REACTIONS (7)
  - FEMUR FRACTURE [None]
  - FALL [None]
  - OEDEMA PERIPHERAL [None]
  - POST PROCEDURAL COMPLICATION [None]
  - ABDOMINAL DISCOMFORT [None]
  - PAIN IN EXTREMITY [None]
  - FRACTURE DISPLACEMENT [None]
